FAERS Safety Report 4813033-8 (Version None)
Quarter: 2005Q4

REPORT INFORMATION
  Report Type: 
  Country: None (occurrence: None)
  Receive Date: 20051026
  Receipt Date: 20051012
  Transmission Date: 20060501
  Serious: Yes (Other)
  Sender: FDA-Public Use
  Company Number: US_0509121926

PATIENT
  Sex: Female
  Weight: 125 kg

DRUGS (5)
  1. CYMBALTA [Suspect]
     Indication: DEPRESSION
     Dosage: 30 MG DAY
     Dates: start: 20050509, end: 20050520
  2. LISINOPRIL [Concomitant]
  3. YSAMIN [Concomitant]
  4. METFORMIN HCL [Concomitant]
  5. MAXALAT-MLT (RIZATRIPTAN BENZOATE) [Concomitant]

REACTIONS (2)
  - GRAND MAL CONVULSION [None]
  - NEUROTOXICITY [None]
